FAERS Safety Report 10032758 (Version 1)
Quarter: 2014Q1

REPORT INFORMATION
  Report Type: Spontaneous
  Country: AU (occurrence: AU)
  Receive Date: 20140324
  Receipt Date: 20140324
  Transmission Date: 20141002
  Serious: Yes (Hospitalization)
  Sender: FDA-Public Use
  Company Number: AU-BRISTOL-MYERS SQUIBB COMPANY-20531778

PATIENT
  Sex: Male

DRUGS (1)
  1. FORXIGA [Suspect]
     Dates: start: 20140310

REACTIONS (2)
  - Testicular torsion [Unknown]
  - Epididymitis [Unknown]
